FAERS Safety Report 8965510 (Version 1)
Quarter: 2012Q4

REPORT INFORMATION
  Report Type: Spontaneous
  Country: US (occurrence: None)
  Receive Date: 20121212
  Receipt Date: 20121212
  Transmission Date: 20130627
  Serious: No
  Sender: FDA-Public Use
  Company Number: None

PATIENT

DRUGS (1)
  1. WINRHO SDF [Suspect]

REACTIONS (4)
  - Product packaging issue [None]
  - Product label confusion [None]
  - Medication error [None]
  - Circumstance or information capable of leading to medication error [None]
